FAERS Safety Report 13010124 (Version 1)
Quarter: 2016Q4

REPORT INFORMATION
  Report Type: Spontaneous
  Country: US (occurrence: US)
  Receive Date: 20161206
  Receipt Date: 20161206
  Transmission Date: 20170207
  Serious: Yes (Hospitalization)
  Sender: FDA-Public Use
  Company Number: None

PATIENT
  Age: 62 Year
  Sex: Male
  Weight: 79.6 kg

DRUGS (3)
  1. CAMPTOSAR [Suspect]
     Active Substance: IRINOTECAN HYDROCHLORIDE
     Dates: end: 20161123
  2. ELOXATIN [Concomitant]
     Active Substance: OXALIPLATIN
     Dates: end: 20161123
  3. 5-FLUOROURACIL (5-FU) [Suspect]
     Active Substance: FLUOROURACIL
     Dates: end: 20161123

REACTIONS (3)
  - Acute kidney injury [None]
  - Septic shock [None]
  - Neutropenia [None]

NARRATIVE: CASE EVENT DATE: 20161129
